FAERS Safety Report 8079321-X (Version None)
Quarter: 2012Q1

REPORT INFORMATION
  Report Type: 
  Country: None (occurrence: None)
  Receive Date: 20120128
  Receipt Date: 20110821
  Transmission Date: 20120608
  Serious: No
  Sender: FDA-Public Use
  Company Number: US-ABBOTT-11P-163-0848368-00

PATIENT
  Age: 56 Year
  Sex: Male

DRUGS (6)
  1. AMITRIPTYLINE HCL [Concomitant]
     Indication: IRRITABLE BOWEL SYNDROME
  2. NEBIVOLOL HCL [Concomitant]
     Indication: BLOOD PRESSURE
  3. HUMIRA [Suspect]
     Dates: end: 20110426
  4. HUMIRA [Suspect]
     Indication: PSORIASIS
     Dosage: STARTING DOSE
     Dates: start: 20110419, end: 20110419
  5. SIMVASTATIN [Concomitant]
     Indication: BLOOD CHOLESTEROL
  6. TRI-CHLOR [Concomitant]
     Indication: BLOOD TRIGLYCERIDES

REACTIONS (1)
  - RASH [None]
